FAERS Safety Report 10365695 (Version 1)
Quarter: 2014Q3

REPORT INFORMATION
  Report Type: Spontaneous
  Country: GB (occurrence: GB)
  Receive Date: 20140806
  Receipt Date: 20140806
  Transmission Date: 20150326
  Serious: Yes (Other)
  Sender: FDA-Public Use
  Company Number: GB-WATSON-2014-16776

PATIENT
  Age: 33 Year
  Sex: Female

DRUGS (5)
  1. PREDNISOLONE (UNKNOWN) [Suspect]
     Active Substance: PREDNISOLONE
     Indication: MYASTHENIA GRAVIS
     Dosage: 35 MG, QOD -REDUSED TO 27.5 MG EVERY 4 WKS
     Route: 048
  2. HIZENTRA [Suspect]
     Active Substance: HUMAN IMMUNOGLOBULIN G
     Indication: MYASTHENIA GRAVIS
     Dosage: 16 MG, 2/WEEK; 16MG (80ML) TWICE WEEKLY TO PROVIDE A CUMULATIVE LOADING DOSE OF 1.8G/KG OVER 4 WEEKS
     Route: 058
  3. PYRIDOSTIGMINE [Suspect]
     Active Substance: PYRIDOSTIGMINE
     Indication: MYASTHENIA GRAVIS
     Dosage: UNK
     Route: 065
  4. HIZENTRA [Suspect]
     Active Substance: HUMAN IMMUNOGLOBULIN G
     Dosage: MAINTENANCE SCIG TREATMENT WAS STARTED WITH A DOSAGE OF 0.25MG/KG/WK (20G/WK, 100MLS HIZENTRA)
     Route: 058
  5. PREDNISOLONE (UNKNOWN) [Suspect]
     Active Substance: PREDNISOLONE
     Dosage: 27 MG, QOD; REDUCED TO 27.5MG ALTERNATE DAYS TO CONTINUE TO WEAN BY 2.5MG EVERY ?4WKS (AS REPORTED)
     Route: 048

REACTIONS (3)
  - Condition aggravated [Unknown]
  - Photophobia [Unknown]
  - Headache [Unknown]
